FAERS Safety Report 19755682 (Version 1)
Quarter: 2021Q3

REPORT INFORMATION
  Report Type: Spontaneous
  Country: CN (occurrence: CN)
  Receive Date: 20210827
  Receipt Date: 20210827
  Transmission Date: 20211014
  Serious: Yes (Hospitalization, Other)
  Sender: FDA-Public Use
  Company Number: CN-009507513-2108CHN005706

PATIENT
  Age: 58 Year
  Sex: Male
  Weight: 49 kg

DRUGS (6)
  1. ZYVOX [Suspect]
     Active Substance: LINEZOLID
     Indication: PNEUMONIA
     Dosage: DOSE: 0.6 G, FREQUENCY: EVERY 12 HOURS (Q12H)
     Route: 041
     Dates: start: 20210318, end: 20210401
  2. DIFLUCAN [Suspect]
     Active Substance: FLUCONAZOLE
     Indication: ABDOMINAL INFECTION
  3. TIENAM [Suspect]
     Active Substance: CILASTATIN SODIUM\IMIPENEM
     Indication: ABDOMINAL INFECTION
  4. ZYVOX [Suspect]
     Active Substance: LINEZOLID
     Indication: ABDOMINAL INFECTION
  5. DIFLUCAN [Suspect]
     Active Substance: FLUCONAZOLE
     Indication: PNEUMONIA
     Dosage: DOSE: 200 MG, FREQUENCY: ONCE DAILY (QD)
     Route: 041
     Dates: start: 20210318, end: 20210329
  6. TIENAM [Suspect]
     Active Substance: CILASTATIN SODIUM\IMIPENEM
     Indication: PNEUMONIA
     Dosage: DOSE: 1 G, FREQUENCY: EVERY 6 HOURS (Q6H)
     Route: 041
     Dates: start: 20210311, end: 20210331

REACTIONS (7)
  - Prothrombin time prolonged [Unknown]
  - Blood fibrinogen abnormal [Unknown]
  - Haemoglobin decreased [Unknown]
  - Pneumonia [Unknown]
  - Activated partial thromboplastin time prolonged [Unknown]
  - Platelet count decreased [Recovering/Resolving]
  - Gastric haemorrhage [Unknown]

NARRATIVE: CASE EVENT DATE: 202103
